FAERS Safety Report 22332825 (Version 1)
Quarter: 2023Q2

REPORT INFORMATION
  Report Type: Spontaneous
  Country: US (occurrence: US)
  Receive Date: 20230517
  Receipt Date: 20230517
  Transmission Date: 20230721
  Serious: No
  Sender: FDA-Public Use
  Company Number: US-TAKEDA-2023TUS048742

PATIENT
  Sex: Male
  Weight: 82 kg

DRUGS (3)
  1. CARBATROL [Suspect]
     Active Substance: CARBAMAZEPINE
     Indication: Epilepsy
     Dosage: 200 MILLIGRAM, BID
     Route: 065
  2. LEXAPRO [Concomitant]
     Active Substance: ESCITALOPRAM OXALATE
     Dosage: 10 MILLIGRAM, QD
  3. KEPPRA [Concomitant]
     Active Substance: LEVETIRACETAM
     Dosage: 500 MILLIGRAM, BID

REACTIONS (6)
  - Muscle tightness [Unknown]
  - Energy increased [Unknown]
  - Facial pain [Unknown]
  - Discomfort [Unknown]
  - Myalgia [Unknown]
  - Inappropriate schedule of product administration [Unknown]
